FAERS Safety Report 4524676-3 (Version None)
Quarter: 2004Q4

REPORT INFORMATION
  Report Type: 
  Country: None (occurrence: None)
  Receive Date: 20041211
  Receipt Date: 20030605
  Transmission Date: 20050328
  Serious: Yes (Hospitalization, Disabling)
  Sender: FDA-Public Use
  Company Number: US-MERCK-0306USA00813

PATIENT
  Age: 43 Year
  Sex: Female
  Weight: 111 kg

DRUGS (1)
  1. VIOXX [Suspect]
     Route: 048

REACTIONS (20)
  - ABDOMINAL PAIN [None]
  - ADVERSE EVENT [None]
  - ANAEMIA [None]
  - ASTHENIA [None]
  - BRONCHITIS [None]
  - CONSTIPATION [None]
  - COSTOCHONDRITIS [None]
  - DIZZINESS [None]
  - FAECAL OCCULT BLOOD POSITIVE [None]
  - GASTRITIS [None]
  - GASTROENTERITIS VIRAL [None]
  - HIGH DENSITY LIPOPROTEIN DECREASED [None]
  - HYPERTENSION [None]
  - HYPOKALAEMIA [None]
  - HYPOMAGNESAEMIA [None]
  - MENORRHAGIA [None]
  - PHARYNGITIS [None]
  - POLYTRAUMATISM [None]
  - SINUSITIS [None]
  - UTERINE LEIOMYOMA [None]
